FAERS Safety Report 6577605-5 (Version None)
Quarter: 2010Q1

REPORT INFORMATION
  Report Type: 
  Country: None (occurrence: None)
  Receive Date: 20100211
  Receipt Date: 20100128
  Transmission Date: 20100710
  Serious: Yes (Hospitalization, Other)
  Sender: FDA-Public Use
  Company Number: PHHY2008US18395

PATIENT
  Sex: Male
  Weight: 98.5 kg

DRUGS (4)
  1. ERL 080A ERL+TAB [Suspect]
     Indication: RENAL TRANSPLANT
     Dosage: 1440 MG, QD
     Route: 048
     Dates: start: 20070718
  2. ERL 080A ERL+TAB [Suspect]
     Indication: IMMUNOSUPPRESSION
  3. PROGRAF [Concomitant]
     Indication: IMMUNOSUPPRESSION
     Dosage: 1 MG, BID
  4. PREDNISONE [Concomitant]
     Indication: IMMUNOSUPPRESSION
     Dosage: 5 MG, QD

REACTIONS (11)
  - CYTOMEGALOVIRUS INFECTION [None]
  - DIARRHOEA [None]
  - DIVERTICULUM INTESTINAL [None]
  - ENTEROCOCCAL BACTERAEMIA [None]
  - GASTROINTESTINAL HAEMORRHAGE [None]
  - GASTROINTESTINAL MUCOSAL DISORDER [None]
  - HAEMATOCHEZIA [None]
  - HAEMATURIA [None]
  - NEPHRECTOMY [None]
  - RENAL CYST INFECTION [None]
  - STAPHYLOCOCCAL BACTERAEMIA [None]
